FAERS Safety Report 26043657 (Version 1)
Quarter: 2025Q4

REPORT INFORMATION
  Report Type: Report from Study
  Country: CA (occurrence: CA)
  Receive Date: 20251113
  Receipt Date: 20251113
  Transmission Date: 20260118
  Serious: Yes (Hospitalization, Other)
  Sender: CELLTRION
  Company Number: CA-CELLTRION INC.-2025CA040602

PATIENT

DRUGS (35)
  1. RITUXIMAB [Suspect]
     Active Substance: RITUXIMAB
     Indication: Acquired epidermolysis bullosa
     Dosage: 1000 MILLIGRAM
     Route: 042
  2. ACRIVASTINE [Concomitant]
     Active Substance: ACRIVASTINE
     Dosage: 50 MILLIGRAM
     Route: 048
  3. AMLODIPINE [Concomitant]
     Active Substance: AMLODIPINE BESYLATE
  4. BIMATOPROST [Concomitant]
     Active Substance: BIMATOPROST
  5. BUDESONIDE\FORMOTEROL FUMARATE [Concomitant]
     Active Substance: BUDESONIDE\FORMOTEROL FUMARATE
  6. CHLORTHALIDONE [Concomitant]
     Active Substance: CHLORTHALIDONE
  7. CHLORTHALIDONE [Concomitant]
     Active Substance: CHLORTHALIDONE
  8. FERROUS FUMARATE [Concomitant]
     Active Substance: FERROUS FUMARATE
  9. FERROUS FUMARATE [Concomitant]
     Active Substance: FERROUS FUMARATE
  10. HYDROCHLOROTHIAZIDE [Concomitant]
     Active Substance: HYDROCHLOROTHIAZIDE
  11. HYDROCHLOROTHIAZIDE [Concomitant]
     Active Substance: HYDROCHLOROTHIAZIDE
  12. INDAPAMIDE [Concomitant]
     Active Substance: INDAPAMIDE
  13. INDAPAMIDE [Concomitant]
     Active Substance: INDAPAMIDE
  14. LANSOPRAZOLE [Concomitant]
     Active Substance: LANSOPRAZOLE
  15. LANSOPRAZOLE [Concomitant]
     Active Substance: LANSOPRAZOLE
  16. LEVEMIR [Concomitant]
     Active Substance: INSULIN DETEMIR
  17. LYRICA [Concomitant]
     Active Substance: PREGABALIN
  18. METHYLPREDNISOLONE SODIUM SUCCINATE [Concomitant]
     Active Substance: METHYLPREDNISOLONE SODIUM SUCCINATE
     Dosage: 100 MILLIGRAM
     Route: 042
  19. MYCOPHENOLATE MOFETIL [Concomitant]
     Active Substance: MYCOPHENOLATE MOFETIL
  20. OMNARIS [Concomitant]
     Active Substance: CICLESONIDE
  21. OMNARIS [Concomitant]
     Active Substance: CICLESONIDE
  22. PANTOPRAZOLE [Concomitant]
     Active Substance: PANTOPRAZOLE
  23. PANTOPRAZOLE [Concomitant]
     Active Substance: PANTOPRAZOLE
  24. PERINDOPRIL [Concomitant]
     Active Substance: PERINDOPRIL
  25. PERINDOPRIL ARGININE [Concomitant]
     Active Substance: PERINDOPRIL ARGININE
  26. PREDNISONE [Concomitant]
     Active Substance: PREDNISONE
  27. PREGABALIN [Concomitant]
     Active Substance: PREGABALIN
  28. ROSUVASTATIN [Concomitant]
     Active Substance: ROSUVASTATIN
  29. SERTRALINE [Concomitant]
     Active Substance: SERTRALINE HYDROCHLORIDE
  30. SILVER SULFADIAZINE [Concomitant]
     Active Substance: SILVER SULFADIAZINE
  31. SULFASALAZINE [Concomitant]
     Active Substance: SULFASALAZINE
     Dosage: 500 MILLIGRAM, 1 EVERY .5 DAYS
     Route: 048
  32. TIMOLOL MALEATE [Concomitant]
     Active Substance: TIMOLOL MALEATE
  33. TYLENOL [Concomitant]
     Active Substance: ACETAMINOPHEN
     Dosage: 650 MILLIGRAM
     Route: 048
  34. TYLENOL 8 HR ARTHRITIS PAIN [Concomitant]
     Active Substance: ACETAMINOPHEN
  35. ZOPICLONE [Concomitant]
     Active Substance: ZOPICLONE

REACTIONS (12)
  - Actinic keratosis [Recovered/Resolved]
  - Blister [Recovered/Resolved]
  - Bowen^s disease [Recovered/Resolved]
  - Chronic kidney disease [Recovered/Resolved]
  - Dyslipidaemia [Recovered/Resolved]
  - Glaucoma [Recovered/Resolved]
  - Skin exfoliation [Recovered/Resolved]
  - Spinal laminectomy [Recovered/Resolved]
  - Gastrooesophageal reflux disease [Recovered/Resolved]
  - Osteoarthritis [Recovered/Resolved]
  - Pneumonia [Recovered/Resolved]
  - Intentional product use issue [Unknown]
